FAERS Safety Report 7134409-2 (Version None)
Quarter: 2010Q4

REPORT INFORMATION
  Report Type: 
  Country: None (occurrence: None)
  Receive Date: 20101203
  Receipt Date: 20101128
  Transmission Date: 20110411
  Serious: Yes (Death, Other)
  Sender: FDA-Public Use
  Company Number: PHHY2010ZM81607

PATIENT
  Sex: Male

DRUGS (1)
  1. COARTEM [Suspect]
     Indication: MALARIA

REACTIONS (3)
  - ASPHYXIA [None]
  - CHEST PAIN [None]
  - VOMITING [None]
